FAERS Safety Report 19892636 (Version 6)
Quarter: 2024Q4

REPORT INFORMATION
  Report Type: Report from Study
  Country: CA (occurrence: CA)
  Receive Date: 20210928
  Receipt Date: 20241122
  Transmission Date: 20250115
  Serious: No
  Sender: TAKEDA
  Company Number: CA-TAKEDA-2021TUS057720

PATIENT
  Age: 24 Year
  Sex: Male

DRUGS (12)
  1. TEDUGLUTIDE [Suspect]
     Active Substance: TEDUGLUTIDE
     Indication: Short-bowel syndrome
     Dosage: 1.75 MILLIGRAM, QD
     Dates: start: 20190818, end: 20191018
  2. TEDUGLUTIDE [Suspect]
     Active Substance: TEDUGLUTIDE
     Dosage: 2.5 MILLIGRAM, QD
     Dates: start: 20191018, end: 201911
  3. TEDUGLUTIDE [Suspect]
     Active Substance: TEDUGLUTIDE
     Dosage: 3.4 MILLIGRAM, QD
     Dates: start: 201911
  4. TEDUGLUTIDE [Suspect]
     Active Substance: TEDUGLUTIDE
  5. CODEINE [Concomitant]
     Active Substance: CODEINE
     Indication: Gastrointestinal stoma complication
     Dosage: 30 MILLIGRAM, BID
     Dates: start: 20191217
  6. CODEINE [Concomitant]
     Active Substance: CODEINE
     Dosage: 30 MILLIGRAM
  7. CODEINE [Concomitant]
     Active Substance: CODEINE
     Dosage: 15 MILLIGRAM, BID
     Dates: start: 20190906, end: 20191217
  8. CODEINE [Concomitant]
     Active Substance: CODEINE
     Dosage: 30 MILLIGRAM
  9. VITAMIN D3 [Concomitant]
     Active Substance: CHOLECALCIFEROL
     Indication: Vitamin D deficiency
     Dosage: 2000 INTERNATIONAL UNIT, QD
  10. VITAMIN D3 [Concomitant]
     Active Substance: CHOLECALCIFEROL
     Indication: Malabsorption
  11. LOPERAMIDE [Concomitant]
     Active Substance: LOPERAMIDE
     Dosage: 4 MILLIGRAM
  12. LANSOPRAZOLE [Concomitant]
     Active Substance: LANSOPRAZOLE
     Dosage: 30 MILLIGRAM

REACTIONS (1)
  - Hepatic lesion [Not Recovered/Not Resolved]

NARRATIVE: CASE EVENT DATE: 20211026
